FAERS Safety Report 9201186 (Version 1)
Quarter: 2013Q2

REPORT INFORMATION
  Report Type: Spontaneous
  Country: MX (occurrence: MX)
  Receive Date: 20130401
  Receipt Date: 20130401
  Transmission Date: 20140414
  Serious: Yes (Other)
  Sender: FDA-Public Use
  Company Number: PHHY2013MX029189

PATIENT
  Age: 57 Year
  Sex: Female

DRUGS (2)
  1. EXFORGE [Suspect]
     Indication: HYPERTENSION
     Dosage: 1 DF (320 MG VALSA/ 10 MG AMLO), DAILY
     Route: 048
     Dates: start: 20121117
  2. EXFORGE [Suspect]
     Dosage: 0.5 DF, DAILY.
     Dates: start: 20130308

REACTIONS (7)
  - Appendicitis [Recovered/Resolved]
  - Lung disorder [Recovered/Resolved]
  - Infection [Unknown]
  - Pain [Unknown]
  - Gastritis [Unknown]
  - Dyspepsia [Unknown]
  - Wrong technique in drug usage process [Unknown]
